FAERS Safety Report 10142259 (Version 2)
Quarter: 2014Q2

REPORT INFORMATION
  Report Type: Spontaneous
  Country: JP (occurrence: JP)
  Receive Date: 20140429
  Receipt Date: 20140625
  Transmission Date: 20141212
  Serious: Yes (Other)
  Sender: FDA-Public Use
  Company Number: PHHY2014JP051765

PATIENT
  Age: 73 Year
  Sex: Male

DRUGS (1)
  1. ZOMETA [Suspect]
     Indication: PLASMA CELL MYELOMA
     Dosage: UNK UKN, UNK
     Route: 041
     Dates: start: 20110220, end: 20130530

REACTIONS (4)
  - Osteonecrosis of jaw [Recovered/Resolved]
  - Gingival swelling [Unknown]
  - Gingival erythema [Unknown]
  - Gingivitis [Unknown]
